FAERS Safety Report 7358281-0 (Version None)
Quarter: 2011Q1

REPORT INFORMATION
  Report Type: 
  Country: None (occurrence: None)
  Receive Date: 20110317
  Receipt Date: 20110314
  Transmission Date: 20110831
  Serious: Yes (Other)
  Sender: FDA-Public Use
  Company Number: ES-ROCHE-765223

PATIENT
  Age: 55 Year
  Sex: Male

DRUGS (2)
  1. PEGINTERFERON ALFA-2A [Suspect]
     Indication: HEPATITIS C
     Dosage: DRUG:PEGYLATED IFN- ALPHA
     Route: 065
     Dates: start: 20070301
  2. RIBAVIRIN [Suspect]
     Indication: HEPATITIS C
     Dosage: FREQUENCY: DAILY IN DIVIDED DOSES
     Route: 065

REACTIONS (2)
  - CUTANEOUS SARCOIDOSIS [None]
  - ANGIOTENSIN CONVERTING ENZYME INCREASED [None]
